FAERS Safety Report 20852279 (Version 1)
Quarter: 2022Q2

REPORT INFORMATION
  Report Type: Spontaneous
  Country: US (occurrence: US)
  Receive Date: 20220520
  Receipt Date: 20220520
  Transmission Date: 20220721
  Serious: Yes (Other)
  Sender: FDA-Public Use
  Company Number: US-CELLTRION INC.-2022US006625

PATIENT

DRUGS (3)
  1. TRUXIMA [Suspect]
     Active Substance: RITUXIMAB-ABBS
     Indication: Acute lymphocytic leukaemia
     Dosage: 800MG FOR 21-DAY CYCLES
  2. TRUXIMA [Suspect]
     Active Substance: RITUXIMAB-ABBS
     Dosage: 800MG FOR 21-DAY CYCLES
     Dates: start: 20220421
  3. TRUXIMA [Suspect]
     Active Substance: RITUXIMAB-ABBS
     Dosage: 800MG FOR 21-DAY CYCLES
     Dates: start: 20220509

REACTIONS (2)
  - Acute lymphocytic leukaemia [Unknown]
  - Off label use [Unknown]
